FAERS Safety Report 8514734-0 (Version None)
Quarter: 2012Q3

REPORT INFORMATION
  Report Type: 
  Country: None (occurrence: None)
  Receive Date: 20120717
  Receipt Date: 20120703
  Transmission Date: 20120928
  Serious: Yes (Hospitalization)
  Sender: FDA-Public Use
  Company Number: KR-BAYER-2012-065897

PATIENT
  Sex: Female

DRUGS (3)
  1. YASMIN [Suspect]
     Indication: CONTRACEPTION
     Dosage: UNK
     Route: 048
     Dates: start: 20110101, end: 20120623
  2. MEDICATION FOR INFLAMMATION AND COLD [Suspect]
     Indication: INFLAMMATION
  3. MEDICATION FOR INFLAMMATION AND COLD [Suspect]
     Indication: NASOPHARYNGITIS

REACTIONS (6)
  - HYPOMENORRHOEA [None]
  - ANXIETY [None]
  - COLITIS [None]
  - MENSTRUAL DISORDER [None]
  - GASTROINTESTINAL DISORDER [None]
  - WITHDRAWAL BLEED [None]
